FAERS Safety Report 9074570 (Version 1)
Quarter: 2013Q1

REPORT INFORMATION
  Report Type: Report from Study
  Country: US (occurrence: US)
  Receive Date: 20130129
  Receipt Date: 20130129
  Transmission Date: 20140127
  Serious: No
  Sender: FDA-Public Use
  Company Number: US-ABBOTT-12P-163-0928815-00

PATIENT
  Sex: Male
  Weight: 95.34 kg

DRUGS (4)
  1. HUMIRA 40 MG/0.8 ML PEN [Suspect]
     Indication: PSORIASIS
     Dates: start: 2007, end: 2010
  2. SULFASALAZINE [Concomitant]
     Indication: PSORIASIS
  3. MELOXICAM [Concomitant]
     Indication: PSORIASIS
  4. MELOXICAM [Concomitant]
     Indication: PSORIATIC ARTHROPATHY

REACTIONS (4)
  - Joint swelling [Unknown]
  - Arthritis [Unknown]
  - Psoriasis [Recovered/Resolved]
  - Psoriatic arthropathy [Not Recovered/Not Resolved]
